FAERS Safety Report 15036104 (Version 3)
Quarter: 2020Q4

REPORT INFORMATION
  Report Type: Spontaneous
  Country: JP (occurrence: JP)
  Receive Date: 20180620
  Receipt Date: 20201119
  Transmission Date: 20210113
  Serious: Yes (Hospitalization)
  Sender: FDA-Public Use
  Company Number: PHJP2018JP012510

PATIENT
  Age: 47 Year
  Sex: Female

DRUGS (1)
  1. GILENYA [Suspect]
     Active Substance: FINGOLIMOD HYDROCHLORIDE
     Indication: MULTIPLE SCLEROSIS RELAPSE PROPHYLAXIS
     Dosage: 0.5 MG, QD
     Route: 048
     Dates: start: 20180611, end: 20180611

REACTIONS (9)
  - Muscle spasms [Recovered/Resolved]
  - Anaphylactoid reaction [Recovered/Resolved]
  - Sensation of foreign body [Recovered/Resolved]
  - Choking [Recovered/Resolved]
  - Gait disturbance [Recovered/Resolved]
  - Stridor [Recovered/Resolved]
  - Dyspnoea [Recovered/Resolved]
  - Upper airway obstruction [Recovered/Resolved]
  - Altered state of consciousness [Recovered/Resolved]

NARRATIVE: CASE EVENT DATE: 20180611
